FAERS Safety Report 4590033-7 (Version None)
Quarter: 2005Q1

REPORT INFORMATION
  Report Type: 
  Country: None (occurrence: None)
  Receive Date: 20050217
  Receipt Date: 20050204
  Transmission Date: 20050727
  Serious: Yes (Hospitalization)
  Sender: FDA-Public Use
  Company Number: 2005AP00993

PATIENT
  Age: 14 Year
  Sex: Male
  Weight: 55 kg

DRUGS (4)
  1. LIGNOCAINE [Suspect]
     Dosage: 24 ML DAILY IV
     Route: 042
     Dates: start: 20030330, end: 20030330
  2. PARACETAMOL [Concomitant]
  3. IBUPROFEN [Concomitant]
  4. MORPHINE [Concomitant]

REACTIONS (3)
  - DIZZINESS [None]
  - DYSGEUSIA [None]
  - TINNITUS [None]
